FAERS Safety Report 5484781-4 (Version None)
Quarter: 2007Q4

REPORT INFORMATION
  Report Type: 
  Country: None (occurrence: None)
  Receive Date: 20071012
  Receipt Date: 20071001
  Transmission Date: 20080405
  Serious: Yes (Other)
  Sender: FDA-Public Use
  Company Number: GB-PFIZER INC-2007083482

PATIENT
  Age: 58 Year
  Sex: Female
  Weight: 74 kg

DRUGS (6)
  1. CHAMPIX [Suspect]
     Indication: SMOKING CESSATION THERAPY
     Route: 048
     Dates: start: 20070712, end: 20070901
  2. ACETYLSALICYLIC ACID [Concomitant]
     Route: 048
  3. EVOREL [Concomitant]
     Route: 062
  4. OMEPRAZOLE [Concomitant]
     Route: 048
  5. PREDNISOLONE [Concomitant]
     Route: 048
  6. SIMVASTATIN [Concomitant]
     Route: 048

REACTIONS (5)
  - ABNORMAL DREAMS [None]
  - BACK PAIN [None]
  - CONSTIPATION [None]
  - DEPRESSED MOOD [None]
  - DYSGEUSIA [None]
